FAERS Safety Report 4450802-0 (Version None)
Quarter: 2004Q3

REPORT INFORMATION
  Report Type: 
  Country: None (occurrence: None)
  Receive Date: 20040913
  Receipt Date: 20040517
  Transmission Date: 20050211
  Serious: No
  Sender: FDA-Public Use
  Company Number: 2004-BP-03815BP(0)

PATIENT
  Age: 68 Year
  Sex: Female

DRUGS (7)
  1. SPIRIVA [Suspect]
     Indication: CHRONIC OBSTRUCTIVE AIRWAYS DISEASE
     Dosage: 18 MCG (18 MCG,1 CAPSULE DAILY), IH
     Dates: start: 20040517
  2. LIPITOR [Concomitant]
  3. TIAZAC [Concomitant]
  4. THEOPHYLLINE [Concomitant]
  5. NEXIUM [Concomitant]
  6. ALBUTEROL [Concomitant]
  7. PULMICORT [Concomitant]

REACTIONS (3)
  - FEELING HOT [None]
  - OEDEMA PERIPHERAL [None]
  - PRURITUS [None]
